FAERS Safety Report 21477433 (Version 1)
Quarter: 2022Q4

REPORT INFORMATION
  Report Type: Spontaneous
  Country: US (occurrence: None)
  Receive Date: 20221018
  Receipt Date: 20221018
  Transmission Date: 20230113
  Serious: No
  Sender: FDA-Public Use
  Company Number: None

PATIENT
  Age: 62 Year
  Sex: Male
  Weight: 77.11 kg

DRUGS (2)
  1. CLOBETASOL PROPIONATE [Suspect]
     Active Substance: CLOBETASOL PROPIONATE
     Indication: Dermatitis atopic
     Dosage: OTHER QUANTITY : ALY TO SKIN;?FREQUENCY : TWICE A DAY;?
     Dates: start: 202203
  2. ELIDEL [Suspect]
     Active Substance: PIMECROLIMUS
     Indication: Dermatitis atopic
     Dosage: OTHER QUANTITY : ALY TO AREA OF ARM;?FREQUENCY : DAILY;?
     Dates: start: 202203

REACTIONS (1)
  - Haematological infection [None]
